FAERS Safety Report 5640937-9 (Version None)
Quarter: 2008Q1

REPORT INFORMATION
  Report Type: 
  Country: None (occurrence: None)
  Receive Date: 20080227
  Receipt Date: 20080219
  Transmission Date: 20080703
  Serious: Yes (Life-Threatening, Hospitalization)
  Sender: FDA-Public Use
  Company Number: US-MERCK-0802USA03140

PATIENT
  Age: 59 Year
  Sex: Female
  Weight: 85 kg

DRUGS (13)
  1. JANUVIA [Suspect]
     Indication: DIABETES MELLITUS
     Route: 048
     Dates: start: 20070723
  2. MORPHINE [Concomitant]
     Route: 042
  3. LASIX [Suspect]
     Route: 065
  4. VITAMIN D (UNSPECIFIED) [Concomitant]
     Indication: OSTEOMALACIA
     Route: 065
  5. ASPIRIN [Concomitant]
     Route: 065
  6. PLAVIX [Concomitant]
     Route: 065
  7. DILTIAZEM HYDROCHLORIDE [Concomitant]
     Route: 065
  8. LISINOPRIL [Concomitant]
     Route: 065
  9. OMEPRAZOLE [Concomitant]
     Route: 065
  10. LIBRIUM [Concomitant]
     Route: 065
  11. METOPROLOL [Concomitant]
     Route: 065
  12. PROTONIX [Concomitant]
     Route: 065
  13. SPIRONOLACTONE [Concomitant]
     Route: 065

REACTIONS (15)
  - ANAEMIA [None]
  - CARDIAC FAILURE [None]
  - CLOSTRIDIAL INFECTION [None]
  - COLITIS ISCHAEMIC [None]
  - CONSTIPATION [None]
  - DIABETES MELLITUS INADEQUATE CONTROL [None]
  - FLATULENCE [None]
  - HYPONATRAEMIA [None]
  - HYPOTENSION [None]
  - HYPOVOLAEMIA [None]
  - NON-CARDIAC CHEST PAIN [None]
  - PANCREATITIS [None]
  - RENAL FAILURE ACUTE [None]
  - TRANSIENT ISCHAEMIC ATTACK [None]
  - URINARY TRACT INFECTION [None]
